FAERS Safety Report 21956481 (Version 3)
Quarter: 2023Q1

REPORT INFORMATION
  Report Type: Spontaneous
  Country: US (occurrence: US)
  Receive Date: 20230206
  Receipt Date: 20230213
  Transmission Date: 20230417
  Serious: No
  Sender: FDA-Public Use
  Company Number: US-002147023-NVSC2023US023917

PATIENT
  Sex: Female

DRUGS (8)
  1. RITALIN [Suspect]
     Active Substance: METHYLPHENIDATE HYDROCHLORIDE
     Indication: Product used for unknown indication
     Dosage: UNK
     Route: 048
  2. IBUPROFEN [Suspect]
     Active Substance: IBUPROFEN
     Indication: Product used for unknown indication
     Route: 065
  3. DAYTRANA [Suspect]
     Active Substance: METHYLPHENIDATE
     Indication: Attention deficit hyperactivity disorder
     Dosage: 30 MG, 9 HOURS
     Route: 062
  4. DAYTRANA [Suspect]
     Active Substance: METHYLPHENIDATE
     Dosage: 10 MG
     Route: 065
  5. DAYTRANA [Suspect]
     Active Substance: METHYLPHENIDATE
     Dosage: 15 MG
     Route: 065
  6. DAYTRANA [Suspect]
     Active Substance: METHYLPHENIDATE
     Dosage: 20 MG
     Route: 065
  7. DAYTRANA [Suspect]
     Active Substance: METHYLPHENIDATE
     Dosage: 40 MG
     Route: 065
  8. ADDERALL [Suspect]
     Active Substance: AMPHETAMINE ASPARTATE\AMPHETAMINE SULFATE\DEXTROAMPHETAMINE SACCHARATE\DEXTROAMPHETAMINE SULFATE
     Indication: Product used for unknown indication
     Route: 048

REACTIONS (8)
  - Gastritis [Unknown]
  - Gastric disorder [Unknown]
  - Abdominal discomfort [Unknown]
  - Drug hypersensitivity [Unknown]
  - Intentional product use issue [Not Recovered/Not Resolved]
  - Intentional product misuse [Recovered/Resolved]
  - Fatigue [Unknown]
  - Drug ineffective [Recovered/Resolved]
